FAERS Safety Report 5158196-2 (Version None)
Quarter: 2006Q4

REPORT INFORMATION
  Report Type: 
  Country: None (occurrence: None)
  Receive Date: 20061120
  Receipt Date: 20061120
  Transmission Date: 20070319
  Serious: No
  Sender: FDA-Public Use
  Company Number: None

PATIENT

DRUGS (3)
  1. DASATINIB [Suspect]
     Dosage: 70MG PO BID
     Route: 048
     Dates: start: 20060829
  2. TACROLIMUS [Concomitant]
  3. VORICONAZOLE [Concomitant]

REACTIONS (3)
  - CHEST PAIN [None]
  - DRUG ERUPTION [None]
  - DYSPNOEA [None]
